FAERS Safety Report 4289620-5 (Version None)
Quarter: 2004Q1

REPORT INFORMATION
  Report Type: 
  Country: None (occurrence: None)
  Receive Date: 20040206
  Receipt Date: 20031019
  Transmission Date: 20041129
  Serious: Yes (Other)
  Sender: FDA-Public Use
  Company Number: KII-2003-0007032

PATIENT
  Age: 69 Year
  Sex: Female

DRUGS (3)
  1. MORPHINE [Suspect]
     Indication: PAIN
     Dosage: INTRAVENOUS
     Route: 042
     Dates: start: 20031015, end: 20031016
  2. BENZODIAZEPINE DERIVATIVES () [Suspect]
     Indication: DRUG USE FOR UNKNOWN INDICATION
     Dosage: SINGLE
     Dates: start: 20031014, end: 20031014
  3. OXYGEN (OXYGEN) [Concomitant]

REACTIONS (7)
  - COLLAPSE OF LUNG [None]
  - DEPRESSED LEVEL OF CONSCIOUSNESS [None]
  - DYSARTHRIA [None]
  - MOANING [None]
  - PCO2 INCREASED [None]
  - RENAL FAILURE [None]
  - RESPIRATORY DEPRESSION [None]
